FAERS Safety Report 8908871 (Version 4)
Quarter: 2014Q1

REPORT INFORMATION
  Report Type: Spontaneous
  Country: US (occurrence: US)
  Receive Date: 20121114
  Receipt Date: 20140204
  Transmission Date: 20141002
  Serious: Yes (Hospitalization, Disabling, Other)
  Sender: FDA-Public Use
  Company Number: US-009507513-1211USA002775

PATIENT
  Sex: Female
  Weight: 60.32 kg

DRUGS (8)
  1. FOSAMAX [Suspect]
     Indication: OSTEOPOROSIS
     Dosage: 70 MG, UNK
     Route: 048
     Dates: start: 20030820, end: 200606
  2. PREMPRO [Concomitant]
     Indication: HORMONE THERAPY
     Dosage: UNK
     Dates: start: 199901
  3. VITAMIN A [Concomitant]
     Dosage: UNK
     Dates: start: 20030908, end: 2006
  4. VITAMIN D (UNSPECIFIED) [Concomitant]
     Dosage: 600-800 IU, UNK
     Dates: start: 20030908, end: 2006
  5. VITAMIN E [Concomitant]
     Dosage: UNK
     Dates: start: 20030908, end: 2006
  6. CALCIUM (UNSPECIFIED) [Concomitant]
     Dosage: 1500 DF, UNK
     Dates: start: 20030908, end: 2006
  7. CALCIUM (UNSPECIFIED) [Concomitant]
     Dosage: 1800 MG, QD
     Dates: start: 20061006
  8. PRILOSEC [Concomitant]
     Dosage: UNK
     Dates: start: 20030908, end: 200606

REACTIONS (23)
  - Femur fracture [Not Recovered/Not Resolved]
  - Tibia fracture [Unknown]
  - Surgery [Not Recovered/Not Resolved]
  - Femur fracture [Unknown]
  - Acetabulum fracture [Unknown]
  - Low turnover osteopathy [Unknown]
  - Osteoporosis [Unknown]
  - Stress fracture [Unknown]
  - Bone disorder [Unknown]
  - Impaired healing [Unknown]
  - Periodontal operation [Unknown]
  - Vitamin D deficiency [Unknown]
  - Calcium deficiency [Unknown]
  - Blood cholesterol increased [Unknown]
  - Raynaud^s phenomenon [Unknown]
  - Barrett^s oesophagus [Unknown]
  - Lower limb fracture [Unknown]
  - Ankle fracture [Unknown]
  - Pubis fracture [Unknown]
  - Mobility decreased [Unknown]
  - Osteoarthritis [Unknown]
  - Osteopenia [Unknown]
  - Nephrolithiasis [Unknown]
